FAERS Safety Report 4900782-6 (Version None)
Quarter: 2006Q1

REPORT INFORMATION
  Report Type: 
  Country: None (occurrence: None)
  Receive Date: 20060201
  Receipt Date: 20060120
  Transmission Date: 20060701
  Serious: Yes (Death, Hospitalization)
  Sender: FDA-Public Use
  Company Number: 2006JP000134

PATIENT
  Age: 68 Year
  Sex: Female
  Weight: 42 kg

DRUGS (10)
  1. TACROLIMUS (TACROLIMUS) CAPSULE [Suspect]
     Indication: RHEUMATOID ARTHRITIS
     Dosage: 2 MG,UID/QD, ORAL
     Route: 048
     Dates: start: 20050620, end: 20050713
  2. AMLODIPINE BESYLATE [Concomitant]
  3. OLMETEC (OLMESARTAM MEDOXOMIL) TABLET [Concomitant]
  4. LASIX /SWE/(FUROSEMIDE) TABLET [Concomitant]
  5. CARDELIN (DOXAZOSIN MESILATE) TABLET [Concomitant]
  6. SELBEX (TEPRENONE) TABLET [Concomitant]
  7. METHYCOBAL (MECOBALAMIN) TABLET [Concomitant]
  8. SLOW-K [Concomitant]
  9. BAKTAR (SULFAMETHOXAZOLE, TRIMETHOPRIM) TABLET [Concomitant]
  10. BAKTAR (SULFAMETHOXAZOLE, TRIMETHOPRIM) TABLET [Concomitant]

REACTIONS (3)
  - CEREBRAL INFARCTION [None]
  - PLATELET COUNT DECREASED [None]
  - RESPIRATORY DISORDER [None]
